FAERS Safety Report 10212362 (Version 1)
Quarter: 2014Q2

REPORT INFORMATION
  Report Type: Spontaneous
  Country: US (occurrence: US)
  Receive Date: 20140602
  Receipt Date: 20140602
  Transmission Date: 20141212
  Serious: No
  Sender: FDA-Public Use
  Company Number: US-AMGEN-USASP2014038145

PATIENT
  Sex: Male

DRUGS (3)
  1. ENBREL [Suspect]
     Indication: ANKYLOSING SPONDYLITIS
     Dosage: 50 MG, QWK
     Route: 065
  2. TRAMADOL [Concomitant]
     Dosage: UNK
  3. CYMBALTA [Concomitant]
     Dosage: UNK

REACTIONS (1)
  - Urinary incontinence [Recovered/Resolved]
